FAERS Safety Report 10657296 (Version 2)
Quarter: 2014Q4

REPORT INFORMATION
  Report Type: Spontaneous
  Country: CA (occurrence: CA)
  Receive Date: 20141217
  Receipt Date: 20141217
  Transmission Date: 20150529
  Serious: Yes (Other)
  Sender: FDA-Public Use
  Company Number: CA-GLAXOSMITHKLINE-A1085823A

PATIENT
  Age: 33 Year
  Sex: Female
  Weight: 51 kg

DRUGS (1)
  1. BENLYSTA [Suspect]
     Active Substance: BELIMUMAB
     Indication: SYSTEMIC LUPUS ERYTHEMATOSUS
     Dosage: 0,2,4 WEEKS, THEN EVERY 4 WEEKS
     Route: 042
     Dates: start: 20140724

REACTIONS (7)
  - Protein total increased [Unknown]
  - Systemic lupus erythematosus [Unknown]
  - Proteinuria [Unknown]
  - Renal disorder [Unknown]
  - Vomiting [Recovered/Resolved]
  - Nausea [Recovered/Resolved]
  - Oedema [Unknown]

NARRATIVE: CASE EVENT DATE: 201407
